FAERS Safety Report 20791249 (Version 2)
Quarter: 2022Q2

REPORT INFORMATION
  Report Type: Spontaneous
  Country: MU (occurrence: MU)
  Receive Date: 20220505
  Receipt Date: 20220614
  Transmission Date: 20220720
  Serious: Yes (Death, Hospitalization, Other)
  Sender: FDA-Public Use
  Company Number: MU-NOVARTISPH-NVSC2022MU103149

PATIENT
  Sex: Female

DRUGS (2)
  1. GLIVEC [Suspect]
     Active Substance: IMATINIB MESYLATE
     Indication: Chronic myeloid leukaemia
     Dosage: 400 MG (4 X 100MG TABLETS)
     Route: 065
  2. GLIVEC [Suspect]
     Active Substance: IMATINIB MESYLATE
     Dosage: 400 MG, QD
     Route: 048
     Dates: end: 202203

REACTIONS (6)
  - Pulmonary hypertension [Fatal]
  - Cardiac failure [Fatal]
  - SARS-CoV-2 antibody test positive [Fatal]
  - Pyrexia [Fatal]
  - Cough [Fatal]
  - Oropharyngeal pain [Fatal]
